FAERS Safety Report 9791417 (Version 1)
Quarter: 2014Q1

REPORT INFORMATION
  Report Type: Report from Study
  Country: IL (occurrence: IL)
  Receive Date: 20140101
  Receipt Date: 20140101
  Transmission Date: 20141002
  Serious: Yes (Other)
  Sender: FDA-Public Use
  Company Number: PHHY2013IL151680

PATIENT
  Age: 64 Year
  Sex: Female
  Weight: 77 kg

DRUGS (2)
  1. SOM230 [Suspect]
     Indication: PITUITARY-DEPENDENT CUSHING^S SYNDROME
     Dosage: 600 UG, BID
     Route: 058
     Dates: start: 20131013, end: 20131222
  2. TEMOZOLOMIDE [Concomitant]
     Indication: PITUITARY-DEPENDENT CUSHING^S SYNDROME

REACTIONS (1)
  - Diabetes mellitus [Not Recovered/Not Resolved]
